FAERS Safety Report 5270610-0 (Version None)
Quarter: 2007Q1

REPORT INFORMATION
  Report Type: 
  Country: None (occurrence: None)
  Receive Date: 20070315
  Receipt Date: 20070309
  Transmission Date: 20070707
  Serious: Yes (Death)
  Sender: FDA-Public Use
  Company Number: 163-21880-06100343

PATIENT
  Age: 72 Year
  Sex: Male

DRUGS (12)
  1. REVLIMID [Suspect]
     Indication: MULTIPLE MYELOMA
     Dosage: SEE IMAGE
     Route: 048
     Dates: start: 20060822, end: 20060101
  2. REVLIMID [Suspect]
     Indication: MULTIPLE MYELOMA
     Dosage: SEE IMAGE
     Route: 048
     Dates: start: 20061007, end: 20061001
  3. ZYRTEC [Concomitant]
  4. ADVAIR DISKUS 100/50 [Concomitant]
  5. FERROUS SULFATE TAB [Concomitant]
  6. LASIX [Concomitant]
  7. LORTAB [Concomitant]
  8. NEURONTIN [Concomitant]
  9. CELEXA [Concomitant]
  10. PROTONIX [Concomitant]
  11. COLCHICINE (COLCHICINE) [Concomitant]
  12. ALLOPURINOL [Concomitant]

REACTIONS (7)
  - BLOOD TEST ABNORMAL [None]
  - CARDIO-RESPIRATORY ARREST [None]
  - MALIGNANT NEOPLASM PROGRESSION [None]
  - MULTIPLE MYELOMA [None]
  - PAIN [None]
  - RENAL FAILURE [None]
  - THROMBOCYTOPENIA [None]
